APPROVED DRUG PRODUCT: DORZOLAMIDE HYDROCHLORIDE
Active Ingredient: DORZOLAMIDE HYDROCHLORIDE
Strength: EQ 2% BASE
Dosage Form/Route: SOLUTION/DROPS;OPHTHALMIC
Application: A079186 | Product #001
Applicant: AMERICAN REGENT INC
Approved: Nov 18, 2009 | RLD: No | RS: No | Type: DISCN